FAERS Safety Report 14084344 (Version 1)
Quarter: 2017Q4

REPORT INFORMATION
  Report Type: Spontaneous
  Country: FR (occurrence: FR)
  Receive Date: 20171013
  Receipt Date: 20171013
  Transmission Date: 20180321
  Serious: Yes (Hospitalization)
  Sender: FDA-Public Use
  Company Number: FR-JNJFOC-20171004103

PATIENT
  Age: 89 Year
  Sex: Female

DRUGS (7)
  1. LYRICA [Interacting]
     Active Substance: PREGABALIN
     Indication: PAIN
     Route: 048
     Dates: start: 201705, end: 20170526
  2. DEDROGYL [Concomitant]
     Active Substance: CALCIFEDIOL
     Route: 048
  3. PARACETAMOL [Concomitant]
     Active Substance: ACETAMINOPHEN
     Route: 048
  4. BISOPROLOL FUMARATE. [Concomitant]
     Active Substance: BISOPROLOL FUMARATE
     Route: 048
  5. SERESTA [Interacting]
     Active Substance: OXAZEPAM
     Indication: DEPRESSION
     Route: 048
     Dates: start: 201705, end: 20170526
  6. RISPERDAL [Suspect]
     Active Substance: RISPERIDONE
     Indication: COGNITIVE DISORDER
     Route: 048
     Dates: start: 201705, end: 20170526
  7. PAROXETINE HYDROCHLORIDE. [Concomitant]
     Active Substance: PAROXETINE HYDROCHLORIDE
     Route: 048

REACTIONS (6)
  - Fall [Recovered/Resolved]
  - Sciatica [Unknown]
  - Head injury [Recovered/Resolved]
  - Confusional state [Recovered/Resolved]
  - Loss of consciousness [Recovered/Resolved]
  - Drug interaction [Recovered/Resolved]

NARRATIVE: CASE EVENT DATE: 201705
